FAERS Safety Report 16374959 (Version 2)
Quarter: 2019Q3

REPORT INFORMATION
  Report Type: Report from Study
  Country: None (occurrence: CA)
  Receive Date: 20190531
  Receipt Date: 20190817
  Transmission Date: 20191004
  Serious: Yes (Death, Hospitalization)
  Sender: FDA-Public Use
  Company Number: CA-ABBVIE-19K-028-2800986-00

PATIENT
  Age: 50 Year
  Sex: Male

DRUGS (1)
  1. HUMIRA [Suspect]
     Active Substance: ADALIMUMAB
     Indication: RHEUMATOID ARTHRITIS
     Route: 058
     Dates: start: 20190506, end: 2019

REACTIONS (4)
  - Pancreatitis [Unknown]
  - Pericarditis [Unknown]
  - Loss of consciousness [Unknown]
  - Aneurysm [Fatal]

NARRATIVE: CASE EVENT DATE: 201905
